FAERS Safety Report 9769099 (Version 1)
Quarter: 2013Q4

REPORT INFORMATION
  Report Type: Spontaneous
  Country: US (occurrence: US)
  Receive Date: 20131218
  Receipt Date: 20131218
  Transmission Date: 20140711
  Serious: Yes (Hospitalization, Other)
  Sender: FDA-Public Use
  Company Number: US-SA-2013SA131429

PATIENT
  Age: 72 Year
  Sex: Female

DRUGS (4)
  1. LANTUS [Suspect]
     Indication: TYPE 2 DIABETES MELLITUS
     Route: 065
  2. LANTUS SOLOSTAR [Suspect]
     Dosage: DOSE:9 UNIT(S)
     Route: 058
     Dates: start: 20131212
  3. SOLOSTAR [Concomitant]
     Dates: start: 20131212
  4. XANAX [Concomitant]
     Indication: EYE DISORDER
     Route: 065

REACTIONS (3)
  - Macular degeneration [Unknown]
  - Hypoglycaemia [Unknown]
  - Blood glucose increased [Unknown]
